FAERS Safety Report 8502048-4 (Version None)
Quarter: 2012Q2

REPORT INFORMATION
  Report Type: 
  Country: None (occurrence: None)
  Receive Date: 20120405
  Receipt Date: 20101221
  Transmission Date: 20120825
  Serious: Yes (Life-Threatening)
  Sender: FDA-Public Use
  Company Number: PHHY2010US48452

PATIENT
  Age: 58 Year
  Sex: Female

DRUGS (4)
  1. SIMVASTATIN [Concomitant]
  2. HYZAAR [Concomitant]
  3. RECLAST [Suspect]
     Dosage: 5MG, INTRAVENOUS
     Route: 042
     Dates: start: 20100803, end: 20100803
  4. ACCOLATE [Concomitant]

REACTIONS (5)
  - NAUSEA [None]
  - PYREXIA [None]
  - VOMITING [None]
  - MALAISE [None]
  - MYALGIA [None]
